FAERS Safety Report 22629704 (Version 1)
Quarter: 2023Q2

REPORT INFORMATION
  Report Type: Spontaneous
  Country: US (occurrence: None)
  Receive Date: 20230621
  Receipt Date: 20230621
  Transmission Date: 20230722
  Serious: Yes (Other)
  Sender: FDA-Public Use
  Company Number: None

PATIENT
  Age: 65 Year
  Sex: Male
  Weight: 91.35 kg

DRUGS (8)
  1. .DELTA.8-TETRAHYDROCANNABINOL [Suspect]
     Active Substance: .DELTA.8-TETRAHYDROCANNABINOL
     Indication: Depression
  2. LISINOPRIL [Concomitant]
     Active Substance: LISINOPRIL
  3. Atotvastatin [Concomitant]
  4. OMEPRAZOLE [Concomitant]
     Active Substance: OMEPRAZOLE
  5. VENLAFAXINE [Concomitant]
     Active Substance: VENLAFAXINE HYDROCHLORIDE
  6. ASPIRIN [Concomitant]
     Active Substance: ASPIRIN
  7. AMLODIPINE BESYLATE [Concomitant]
     Active Substance: AMLODIPINE BESYLATE
  8. COENZYME Q10 [Concomitant]
     Active Substance: DIETARY SUPPLEMENT\UBIDECARENONE

REACTIONS (11)
  - Dizziness [None]
  - Presyncope [None]
  - Cerebrovascular accident [None]
  - Myocardial infarction [None]
  - Emotional distress [None]
  - Vertigo [None]
  - Gait disturbance [None]
  - Tremor [None]
  - Panic attack [None]
  - Paraesthesia [None]
  - Anxiety [None]

NARRATIVE: CASE EVENT DATE: 20230615
